FAERS Safety Report 12430174 (Version 4)
Quarter: 2019Q3

REPORT INFORMATION
  Report Type: Spontaneous
  Country: US (occurrence: US)
  Receive Date: 20160602
  Receipt Date: 20190715
  Transmission Date: 20191004
  Serious: Yes (Death, Hospitalization, Other)
  Sender: FDA-Public Use
  Company Number: US-DSJP-DSU-2015-118054

PATIENT

DRUGS (2)
  1. BENICAR HCT [Suspect]
     Active Substance: HYDROCHLOROTHIAZIDE\OLMESARTAN MEDOXOMIL
     Indication: HYPERTENSION
     Dosage: 40-25 MG, QD
     Dates: start: 200602
  2. BENICAR [Suspect]
     Active Substance: OLMESARTAN MEDOXOMIL
     Indication: HYPERTENSION
     Dosage: 20 MG, QD
     Dates: start: 201007

REACTIONS (9)
  - Ascites [Unknown]
  - Cardiac disorder [Fatal]
  - Acute kidney injury [Unknown]
  - Large intestine polyp [Recovered/Resolved]
  - Hiatus hernia [Not Recovered/Not Resolved]
  - Gastric polyps [Unknown]
  - Sprue-like enteropathy [Recovering/Resolving]
  - Coeliac disease [Recovering/Resolving]
  - Small intestinal obstruction [Unknown]

NARRATIVE: CASE EVENT DATE: 2005
